FAERS Safety Report 20052105 (Version 1)
Quarter: 2021Q4

REPORT INFORMATION
  Report Type: Spontaneous
  Country: FR (occurrence: FR)
  Receive Date: 20211110
  Receipt Date: 20211110
  Transmission Date: 20220303
  Serious: Yes (Hospitalization)
  Sender: FDA-Public Use
  Company Number: None

PATIENT
  Age: 59 Year
  Sex: Male
  Weight: 67 kg

DRUGS (11)
  1. ONDANSETRON [Suspect]
     Active Substance: ONDANSETRON
     Indication: Prophylaxis of nausea and vomiting
     Dosage: 1 DF, PRN
     Route: 048
     Dates: start: 20210914, end: 20210914
  2. CETIRIZINE HYDROCHLORIDE [Suspect]
     Active Substance: CETIRIZINE HYDROCHLORIDE
     Indication: Prophylaxis
     Dosage: 1 DF, PRN
     Route: 048
     Dates: start: 20210914, end: 20210914
  3. PREDNISONE [Suspect]
     Active Substance: PREDNISONE
     Indication: Oesophageal carcinoma
     Dosage: 1 DF, PRN
     Route: 048
     Dates: start: 20210914, end: 20210914
  4. PACLITAXEL [Suspect]
     Active Substance: PACLITAXEL
     Indication: Oesophageal carcinoma
     Dosage: UNK (INCONNUE)
     Route: 042
     Dates: start: 20210914, end: 20210914
  5. ESOMEPRAZOLE [Suspect]
     Active Substance: ESOMEPRAZOLE
     Indication: Gastrooesophageal reflux disease
     Dosage: 20 MG,QD
     Route: 048
     Dates: start: 20210908, end: 20210914
  6. EMEND [Suspect]
     Active Substance: APREPITANT
     Indication: Vomiting
     Dosage: 1 DF, PRN
     Route: 048
     Dates: start: 20210914, end: 20210914
  7. CARBOPLATIN [Suspect]
     Active Substance: CARBOPLATIN
     Indication: Oesophageal carcinoma
     Dosage: UNK (INCONNUE)
     Route: 042
     Dates: start: 20210914, end: 20210914
  8. SUCRALFATE [Suspect]
     Active Substance: SUCRALFATE
     Indication: Gastrooesophageal reflux disease
     Dosage: UNK (INCONNUE)
     Route: 048
     Dates: start: 20210910, end: 20210914
  9. RANITIDINE [Suspect]
     Active Substance: RANITIDINE
     Indication: Gastrooesophageal reflux disease
     Dosage: 1 DF, PRN
     Route: 048
     Dates: start: 20210914, end: 20210914
  10. CODEINE [Suspect]
     Active Substance: CODEINE
     Indication: Odynophagia
     Dosage: UNK (INCONNUE)
     Route: 048
     Dates: start: 20210908, end: 20210914
  11. ACETAMINOPHEN [Concomitant]
     Active Substance: ACETAMINOPHEN
     Indication: Odynophagia
     Dosage: UNK (INCONNUE)
     Route: 048
     Dates: start: 20210908, end: 20210914

REACTIONS (2)
  - Pyrexia [Recovered/Resolved]
  - Rash maculo-papular [Recovered/Resolved]

NARRATIVE: CASE EVENT DATE: 20210914
